FAERS Safety Report 10249617 (Version 7)
Quarter: 2015Q1

REPORT INFORMATION
  Report Type: Spontaneous
  Country: US (occurrence: US)
  Receive Date: 20140620
  Receipt Date: 20150130
  Transmission Date: 20150720
  Serious: No
  Sender: FDA-Public Use
  Company Number: US-PFIZER INC-2014166696

PATIENT
  Age: 61 Year
  Sex: Male
  Weight: 113 kg

DRUGS (5)
  1. SUTENT [Suspect]
     Active Substance: SUNITINIB MALATE
     Indication: RENAL CANCER
     Dosage: 50 MG, ONCE DAILY CYCLIC
     Route: 048
     Dates: start: 20140601, end: 201409
  2. VITAMIN B1 [Concomitant]
     Active Substance: THIAMINE HYDROCHLORIDE
     Dosage: UNK
     Dates: start: 20140715
  3. ONGLYZA [Concomitant]
     Active Substance: SAXAGLIPTIN HYDROCHLORIDE
     Indication: DIABETES MELLITUS
     Dosage: 5 MG, DAILY
     Route: 048
     Dates: start: 20140415
  4. SUTENT [Suspect]
     Active Substance: SUNITINIB MALATE
     Dosage: 50 MG, CYCLIC
     Route: 048
     Dates: start: 201409, end: 20141006
  5. LEXAPRO [Concomitant]
     Active Substance: ESCITALOPRAM OXALATE
     Indication: CRYING
     Dosage: 10 MG, DAILY
     Route: 048

REACTIONS (15)
  - Pain in extremity [Recovered/Resolved]
  - Varicose vein ruptured [Recovered/Resolved]
  - Renal cancer [Unknown]
  - Glossodynia [Recovered/Resolved]
  - Oral pain [Recovered/Resolved]
  - Stomatitis [Recovered/Resolved]
  - Skin exfoliation [Recovered/Resolved]
  - Disease progression [Unknown]
  - Nausea [Recovered/Resolved]
  - Dysgeusia [Recovered/Resolved]
  - Blister [Recovered/Resolved]
  - Fatigue [Recovered/Resolved]
  - Malaise [Recovered/Resolved]
  - Poor quality sleep [Recovered/Resolved]
  - Impaired healing [Recovered/Resolved]

NARRATIVE: CASE EVENT DATE: 2014
